FAERS Safety Report 5742731-7 (Version None)
Quarter: 2008Q2

REPORT INFORMATION
  Report Type: 
  Country: None (occurrence: None)
  Receive Date: 20080519
  Receipt Date: 20080515
  Transmission Date: 20081010
  Serious: Yes (Hospitalization)
  Sender: FDA-Public Use
  Company Number: B0520897A

PATIENT
  Sex: Male

DRUGS (2)
  1. NABUMETONE [Suspect]
     Indication: TORTICOLLIS
     Dosage: 1G PER DAY
     Route: 048
  2. ASPIRIN [Suspect]
     Indication: TORTICOLLIS
     Route: 065

REACTIONS (5)
  - ANAPHYLACTIC SHOCK [None]
  - BLOOD PRESSURE DECREASED [None]
  - OEDEMA [None]
  - PRURITUS [None]
  - URTICARIA [None]
